FAERS Safety Report 7969527-X (Version None)
Quarter: 2011Q4

REPORT INFORMATION
  Report Type: 
  Country: None (occurrence: None)
  Receive Date: 20111212
  Receipt Date: 20111207
  Transmission Date: 20120403
  Serious: No
  Sender: FDA-Public Use
  Company Number: US-PFIZER INC-2011299187

PATIENT
  Sex: Female
  Weight: 58.957 kg

DRUGS (2)
  1. PRISTIQ [Suspect]
     Indication: DEPRESSION
     Dosage: 50 MG, 1X/DAY
     Route: 048
     Dates: start: 20100701, end: 20111101
  2. MULTI-VITAMINS [Concomitant]
     Dosage: UNSPECIFIED

REACTIONS (2)
  - DEPRESSION [None]
  - DECREASED INTEREST [None]
